FAERS Safety Report 11864116 (Version 3)
Quarter: 2016Q2

REPORT INFORMATION
  Report Type: Report from Study
  Country: US (occurrence: US)
  Receive Date: 20151223
  Receipt Date: 20160525
  Transmission Date: 20160815
  Serious: Yes (Hospitalization)
  Sender: FDA-Public Use
  Company Number: US-EISAI MEDICAL RESEARCH-EC-2015-011135

PATIENT
  Age: 61 Year
  Sex: Male
  Weight: 83.5 kg

DRUGS (17)
  1. LENVIMA [Suspect]
     Active Substance: LENVATINIB
     Route: 048
     Dates: start: 20160505
  2. CALTRATE [Concomitant]
     Active Substance: CALCIUM CARBONATE
  3. OXYCODONE [Concomitant]
     Active Substance: OXYCODONE
  4. VITAMIN C [Concomitant]
     Active Substance: ASCORBIC ACID
  5. PRILOSEC [Concomitant]
     Active Substance: OMEPRAZOLE MAGNESIUM
  6. LEVOTHYROXINE. [Concomitant]
     Active Substance: LEVOTHYROXINE
  7. LENVIMA [Suspect]
     Active Substance: LENVATINIB
     Route: 048
     Dates: start: 2015, end: 201512
  8. PREVIDENT [Concomitant]
     Active Substance: SODIUM FLUORIDE
  9. VITAMIN E [Concomitant]
     Active Substance: .ALPHA.-TOCOPHEROL
  10. ZOLOFT [Concomitant]
     Active Substance: SERTRALINE HYDROCHLORIDE
  11. LENVIMA [Suspect]
     Active Substance: LENVATINIB
     Indication: THYROID CANCER
     Route: 048
     Dates: start: 20151002, end: 20151016
  12. COLACE [Concomitant]
     Active Substance: DOCUSATE SODIUM
  13. NAPROXEN. [Concomitant]
     Active Substance: NAPROXEN
  14. MIRTAZAPINE. [Concomitant]
     Active Substance: MIRTAZAPINE
  15. AMLODIPINE [Concomitant]
     Active Substance: AMLODIPINE BESYLATE
  16. LENVIMA [Suspect]
     Active Substance: LENVATINIB
     Route: 048
     Dates: end: 201605
  17. OMEPRAZOLE. [Concomitant]
     Active Substance: OMEPRAZOLE

REACTIONS (15)
  - Arthralgia [Recovering/Resolving]
  - Memory impairment [Not Recovered/Not Resolved]
  - Lip pain [Recovering/Resolving]
  - Oropharyngeal pain [Recovering/Resolving]
  - Asthenia [Unknown]
  - Abdominal pain [Unknown]
  - Fatigue [Recovering/Resolving]
  - Pharyngeal oedema [Unknown]
  - Glossodynia [Recovering/Resolving]
  - Back pain [Unknown]
  - Pain [Recovering/Resolving]
  - Decreased appetite [Recovering/Resolving]
  - Constipation [Unknown]
  - Blood pressure diastolic increased [Unknown]
  - Dysphonia [Recovering/Resolving]

NARRATIVE: CASE EVENT DATE: 2015
